FAERS Safety Report 4448086-2 (Version None)
Quarter: 2004Q3

REPORT INFORMATION
  Report Type: 
  Country: None (occurrence: None)
  Receive Date: 20040913
  Receipt Date: 20040908
  Transmission Date: 20050211
  Serious: Yes (Other)
  Sender: FDA-Public Use
  Company Number: PHBS2004BE11917

PATIENT
  Age: 88 Year
  Sex: Female

DRUGS (6)
  1. EXELON [Suspect]
     Indication: DEMENTIA ALZHEIMER'S TYPE
     Dosage: 1.5 MG, BID
     Route: 048
     Dates: start: 20040823, end: 20040906
  2. EXELON [Suspect]
     Dosage: 3 MG, BID
     Route: 048
     Dates: start: 20040907, end: 20040908
  3. EXELON [Suspect]
     Dosage: 1.5 MG, BID
     Route: 048
     Dates: start: 20040909
  4. TRAZOLAN [Concomitant]
     Dosage: 350 MG/D
     Route: 065
  5. LORMETAZEPAM [Concomitant]
     Dosage: UNK, QD
     Route: 065
  6. LANOXIN [Concomitant]
     Route: 065

REACTIONS (1)
  - WAXY FLEXIBILITY [None]
